FAERS Safety Report 7354942-8 (Version None)
Quarter: 2011Q1

REPORT INFORMATION
  Report Type: 
  Country: None (occurrence: None)
  Receive Date: 20110302
  Receipt Date: 20110222
  Transmission Date: 20110831
  Serious: Yes (Hospitalization)
  Sender: FDA-Public Use
  Company Number: 2011027671

PATIENT
  Sex: Female

DRUGS (1)
  1. VIVAGLOBIN [Suspect]
     Dosage: 16 G 1X/WEEK, SUBCUTANEOUS
     Route: 058

REACTIONS (3)
  - CEREBROVASCULAR ACCIDENT [None]
  - CEREBRAL ARTERY THROMBOSIS [None]
  - APHASIA [None]
